FAERS Safety Report 23970865 (Version 1)
Quarter: 2024Q2

REPORT INFORMATION
  Report Type: Spontaneous
  Country: US (occurrence: US)
  Receive Date: 20240613
  Receipt Date: 20240613
  Transmission Date: 20240716
  Serious: Yes (Other)
  Sender: FDA-Public Use
  Company Number: US-SANDOZ-SDZ2024US057079

PATIENT

DRUGS (1)
  1. PANTOPRAZOLE [Suspect]
     Active Substance: PANTOPRAZOLE
     Indication: Eosinophilic oesophagitis
     Dosage: UNK
     Route: 065

REACTIONS (6)
  - Choking [Unknown]
  - Eosinophilic oesophagitis [Unknown]
  - Condition aggravated [Unknown]
  - Eating disorder [Unknown]
  - Vomiting [Unknown]
  - Drug ineffective [Unknown]
